FAERS Safety Report 11374805 (Version 1)
Quarter: 2015Q3

REPORT INFORMATION
  Report Type: Spontaneous
  Country: GB (occurrence: GB)
  Receive Date: 20150813
  Receipt Date: 20150813
  Transmission Date: 20151125
  Serious: Yes (Death, Congenital Anomaly, Other)
  Sender: FDA-Public Use
  Company Number: GB-AUROBINDO-09-AUR-09111

PATIENT

DRUGS (2)
  1. CITALOPRAM FILM-COATED TABLETS 10MG [Suspect]
     Active Substance: CITALOPRAM HYDROBROMIDE
     Dosage: 20 MG, UNK
     Route: 064
     Dates: end: 20080620
  2. CITALOPRAM FILM-COATED TABLETS 10MG [Suspect]
     Active Substance: CITALOPRAM HYDROBROMIDE
     Indication: DEPRESSION
     Dosage: 10 MG, UNK
     Route: 064
     Dates: start: 20080225

REACTIONS (3)
  - Stillbirth [Fatal]
  - Anencephaly [Fatal]
  - Foetal exposure during pregnancy [Unknown]
